FAERS Safety Report 6142879-1 (Version None)
Quarter: 2009Q2

REPORT INFORMATION
  Report Type: 
  Country: None (occurrence: None)
  Receive Date: 20090403
  Receipt Date: 20090326
  Transmission Date: 20091009
  Serious: Yes (Hospitalization)
  Sender: FDA-Public Use
  Company Number: CO-PFIZER INC-2009175992

PATIENT

DRUGS (2)
  1. ACCUPRIL [Suspect]
     Indication: HYPERTENSION
     Dosage: 10 MG, 1X/DAY
     Route: 048
  2. CARDURA [Suspect]
     Indication: PROSTATITIS
     Dosage: 4 MG, 1X/DAY
     Route: 048
     Dates: start: 20081112, end: 20090110

REACTIONS (1)
  - PROSTATIC OPERATION [None]
